FAERS Safety Report 8480767-6 (Version None)
Quarter: 2012Q2

REPORT INFORMATION
  Report Type: 
  Country: None (occurrence: None)
  Receive Date: 20120625
  Receipt Date: 20120615
  Transmission Date: 20120825
  Serious: Yes (Hospitalization)
  Sender: FDA-Public Use
  Company Number: 2012SP033787

PATIENT
  Age: 57 Year
  Sex: Female
  Weight: 50 kg

DRUGS (3)
  1. VICTRELIS [Suspect]
     Indication: HEPATITIS C
     Dosage: 1200 MG;
     Dates: start: 20100409, end: 20110212
  2. REBETOL [Suspect]
     Indication: HEPATITIS C
     Dosage: 600 MG;QD;PO
     Route: 048
     Dates: start: 20100312, end: 20110211
  3. VIRAFERONPEG [Suspect]
     Indication: HEPATITIS C
     Dosage: 80 MCG;QW;
     Dates: start: 20100312, end: 20110212

REACTIONS (1)
  - CORNEAL TRANSPLANT [None]
